FAERS Safety Report 7039505-6 (Version None)
Quarter: 2010Q3

REPORT INFORMATION
  Report Type: 
  Country: None (occurrence: None)
  Receive Date: 20100929
  Receipt Date: 20100610
  Transmission Date: 20110219
  Serious: No
  Sender: FDA-Public Use
  Company Number: US-WYE-H15602510

PATIENT
  Sex: Male

DRUGS (2)
  1. PRISTIQ [Suspect]
     Dates: start: 20100601
  2. EFFEXOR XR [Suspect]
     Dates: end: 20100601

REACTIONS (2)
  - ANXIETY [None]
  - DRUG WITHDRAWAL SYNDROME [None]
